FAERS Safety Report 6138331-X (Version None)
Quarter: 2009Q1

REPORT INFORMATION
  Report Type: 
  Country: None (occurrence: None)
  Receive Date: 20090327
  Receipt Date: 20090327
  Transmission Date: 20090719
  Serious: Yes (Other)
  Sender: FDA-Public Use
  Company Number: None

PATIENT
  Age: 34 Year
  Sex: Female
  Weight: 56.246 kg

DRUGS (1)
  1. MIRENA [Suspect]

REACTIONS (8)
  - ABASIA [None]
  - DISCOMFORT [None]
  - HAEMORRHAGE [None]
  - HYPOAESTHESIA [None]
  - IMPAIRED DRIVING ABILITY [None]
  - PAIN [None]
  - PARAESTHESIA [None]
  - PELVIC PAIN [None]
